FAERS Safety Report 25851652 (Version 2)
Quarter: 2025Q4

REPORT INFORMATION
  Report Type: Spontaneous
  Country: US (occurrence: US)
  Receive Date: 20250926
  Receipt Date: 20251007
  Transmission Date: 20260118
  Serious: Yes (Death, Other)
  Sender: RANBAXY
  Company Number: US-SUN PHARMACEUTICAL INDUSTRIES INC-2025R1-528848

PATIENT
  Age: 68 Year
  Sex: Female

DRUGS (2)
  1. NICARDIPINE [Suspect]
     Active Substance: NICARDIPINE
     Indication: Posterior reversible encephalopathy syndrome
     Dosage: UNK
     Route: 065
  2. KEPPRA XR [Suspect]
     Active Substance: LEVETIRACETAM
     Indication: Posterior reversible encephalopathy syndrome
     Dosage: 500 MILLIGRAM, BID
     Route: 065

REACTIONS (2)
  - Sepsis [Fatal]
  - Treatment noncompliance [Unknown]
